FAERS Safety Report 4474740-2 (Version None)
Quarter: 2004Q4

REPORT INFORMATION
  Report Type: 
  Country: None (occurrence: None)
  Receive Date: 20041012
  Receipt Date: 20040929
  Transmission Date: 20050328
  Serious: Yes (Other)
  Sender: FDA-Public Use
  Company Number: JP-2004-026617

PATIENT
  Age: 49 Year
  Sex: Female
  Weight: 50 kg

DRUGS (7)
  1. BETAFERON (INTERFERON BETA - 1 B) INJECTION, 8MIU [Suspect]
     Indication: MULTIPLE SCLEROSIS
     Dosage: 8 MIU, EVERY 2D, SUBCUTANEOUS
     Route: 058
     Dates: start: 20010205
  2. TEGRETOL [Concomitant]
  3. ZANTAC [Concomitant]
  4. PREDONINE [Concomitant]
  5. ALFAROL (ALFACALCIDOL) [Concomitant]
  6. FAMOTIDINE [Concomitant]
  7. SELBEX (TEPRENONE) [Concomitant]

REACTIONS (2)
  - HEPATITIS B [None]
  - MULTIPLE SCLEROSIS RELAPSE [None]
